FAERS Safety Report 11079736 (Version 2)
Quarter: 2015Q2

REPORT INFORMATION
  Report Type: Report from Study
  Country: CA (occurrence: CA)
  Receive Date: 20150430
  Receipt Date: 20150526
  Transmission Date: 20150821
  Serious: Yes (Other)
  Sender: FDA-Public Use
  Company Number: PHHY2014CA017852

PATIENT
  Age: 79 Year
  Sex: Female

DRUGS (3)
  1. SANDOSTATIN LAR DEPOT [Suspect]
     Active Substance: OCTREOTIDE ACETATE
     Indication: SUBILEUS
     Dosage: 20 MG, QMO
     Route: 030
     Dates: start: 20140204
  2. CAELYX [Concomitant]
     Active Substance: DOXORUBICIN HYDROCHLORIDE
     Indication: PRODUCT USED FOR UNKNOWN INDICATION
     Dosage: EVERY 4 WEEKS
     Route: 065
  3. SANDOSTATIN [Suspect]
     Active Substance: OCTREOTIDE ACETATE
     Indication: SUBILEUS
     Dosage: 150 UG, BID
     Route: 058
     Dates: start: 20140201, end: 201502

REACTIONS (20)
  - Blood pressure decreased [Unknown]
  - Respiratory rate increased [Unknown]
  - Anxiety [Unknown]
  - Body temperature decreased [Unknown]
  - Anaemia [Unknown]
  - Insomnia [Unknown]
  - Injection site pain [Recovered/Resolved]
  - Off label use [Unknown]
  - Blood pressure systolic increased [Unknown]
  - Pain [Unknown]
  - Liver disorder [Unknown]
  - Ascites [Unknown]
  - Tumour marker increased [Unknown]
  - Dizziness postural [Recovered/Resolved]
  - Cellulitis [Unknown]
  - Decreased appetite [Unknown]
  - Nausea [Unknown]
  - Fear of injection [Unknown]
  - Blood pressure diastolic decreased [Unknown]
  - Constipation [Unknown]

NARRATIVE: CASE EVENT DATE: 20140306
